FAERS Safety Report 16846637 (Version 1)
Quarter: 2019Q3

REPORT INFORMATION
  Report Type: Report from Study
  Country: US (occurrence: CA)
  Receive Date: 20190924
  Receipt Date: 20190924
  Transmission Date: 20191005
  Serious: Yes (Life-Threatening)
  Sender: FDA-Public Use
  Company Number: US-RECRO GAINESVILLE LLC-REPH-2019-000198

PATIENT
  Age: 27 Year
  Sex: Female

DRUGS (9)
  1. ASPIRIN                            /00002701/ [Concomitant]
     Active Substance: ASPIRIN
     Indication: ANTIPLATELET THERAPY
     Dosage: 325 MILLIGRAM, QD
     Route: 048
  2. VERAPAMIL HYDROCHLORIDE SUSTAINED RELEASE [Suspect]
     Active Substance: VERAPAMIL HYDROCHLORIDE
     Indication: CEREBRAL VASOCONSTRICTION
     Dosage: 20 MILLIGRAM (2.5 MG/ML SOLUTION) SLOW CONTINUOUS ICA INFUSION
     Route: 013
  3. VERAPAMIL HYDROCHLORIDE SUSTAINED RELEASE [Suspect]
     Active Substance: VERAPAMIL HYDROCHLORIDE
     Dosage: 20 MILLIGRAM INFUSED INTO RIGHT ICA
     Route: 013
  4. LEVETIRACETAM. [Concomitant]
     Active Substance: LEVETIRACETAM
     Indication: SEIZURE PROPHYLAXIS
     Dosage: 1000 MILLIGRAM, BID
     Route: 065
  5. VERAPAMIL HYDROCHLORIDE SUSTAINED RELEASE [Suspect]
     Active Substance: VERAPAMIL HYDROCHLORIDE
     Dosage: 10 MILLIGRAM SLOW IA INFUSION
     Route: 013
  6. VERAPAMIL HYDROCHLORIDE SUSTAINED RELEASE [Suspect]
     Active Substance: VERAPAMIL HYDROCHLORIDE
     Dosage: 20 MILLIGRAM INFUSED INTO RIGHT ICA
     Route: 013
  7. CLOPIDOGREL [Concomitant]
     Active Substance: CLOPIDOGREL BISULFATE
     Indication: ANTIPLATELET THERAPY
     Dosage: 75 MILLIGRAM, QD
     Route: 048
  8. VERAPAMIL HYDROCHLORIDE SUSTAINED RELEASE [Suspect]
     Active Substance: VERAPAMIL HYDROCHLORIDE
     Dosage: 10 MILLIGRAM INFUSED INTO LEFT ICA
     Route: 013
  9. VERAPAMIL HYDROCHLORIDE SUSTAINED RELEASE [Suspect]
     Active Substance: VERAPAMIL HYDROCHLORIDE
     Dosage: 20 MILLIGRAM, INFUSED INTO THE LEFT ICA
     Route: 013

REACTIONS (2)
  - Off label use [Recovered/Resolved]
  - Seizure [Recovered/Resolved]
